FAERS Safety Report 16658051 (Version 1)
Quarter: 2019Q3

REPORT INFORMATION
  Report Type: Spontaneous
  Country: ID (occurrence: ID)
  Receive Date: 20190801
  Receipt Date: 20190801
  Transmission Date: 20191004
  Serious: Yes (Hospitalization, Other)
  Sender: FDA-Public Use
  Company Number: ID-OTSUKA-2019_027750

PATIENT
  Age: 70 Year
  Sex: Female

DRUGS (2)
  1. SAMSCA [Suspect]
     Active Substance: TOLVAPTAN
     Indication: HYPONATRAEMIA
     Dosage: 15 MG, QD
     Route: 048
     Dates: start: 20181212, end: 20190215
  2. SAMSCA [Suspect]
     Active Substance: TOLVAPTAN
     Indication: HYPERVOLAEMIA

REACTIONS (3)
  - Oedema peripheral [Unknown]
  - Liver function test increased [Unknown]
  - Chronic obstructive pulmonary disease [Unknown]

NARRATIVE: CASE EVENT DATE: 20190210
